FAERS Safety Report 18032872 (Version 1)
Quarter: 2020Q3

REPORT INFORMATION
  Report Type: Spontaneous
  Country: FR (occurrence: FR)
  Receive Date: 20200716
  Receipt Date: 20200716
  Transmission Date: 20201103
  Serious: Yes (Life-Threatening, Hospitalization)
  Sender: FDA-Public Use
  Company Number: FR-MYLANLABS-2020M1063724

PATIENT
  Age: 24 Year
  Sex: Female
  Weight: 59 kg

DRUGS (8)
  1. PURINETHOL [Suspect]
     Active Substance: MERCAPTOPURINE
     Indication: RADIOTHERAPY TO HEAD AND NECK
     Dosage: UNK
     Route: 048
     Dates: start: 20200514, end: 20200609
  2. METHOTREXATE. [Suspect]
     Active Substance: METHOTREXATE
     Indication: ACUTE UNDIFFERENTIATED LEUKAEMIA
     Dosage: 1 GRAM PER SQUARE METRE (1 G/M2)
     Route: 051
     Dates: start: 20200204, end: 20200420
  3. VALIUM [Concomitant]
     Active Substance: DIAZEPAM
     Indication: ANXIETY
     Dosage: 1 DOSAGE FORM, QD
     Route: 048
     Dates: start: 20200427, end: 20200612
  4. TERCIAN                            /00759301/ [Concomitant]
     Active Substance: CYAMEMAZINE
     Indication: ANXIETY
     Dosage: 12.5 MILLIGRAM, QD
     Route: 048
     Dates: start: 20200427, end: 20200612
  5. CORTANCYL [Concomitant]
     Active Substance: PREDNISONE
     Indication: GRAFT VERSUS HOST DISEASE
     Dosage: 1 DOSAGE FORM, QD
     Route: 048
     Dates: start: 20200403
  6. BACTRIM [Suspect]
     Active Substance: SULFAMETHOXAZOLE\TRIMETHOPRIM
     Indication: PROPHYLAXIS
     Dosage: UNK
     Route: 048
     Dates: start: 2018
  7. ZELITREX [Concomitant]
     Active Substance: VALACYCLOVIR HYDROCHLORIDE
     Dosage: UNK
  8. CLAMOXYL                           /00249602/ [Suspect]
     Active Substance: AMOXICILLIN
     Indication: ANTIBIOTIC THERAPY
     Dosage: 500 GRAM, QD
     Route: 048
     Dates: start: 20200403

REACTIONS (3)
  - Eosinophilia [Not Recovered/Not Resolved]
  - Hepatocellular injury [Recovering/Resolving]
  - Pancytopenia [Not Recovered/Not Resolved]

NARRATIVE: CASE EVENT DATE: 20200603
